FAERS Safety Report 16787638 (Version 1)
Quarter: 2019Q4

REPORT INFORMATION
  Report Type: Spontaneous
  Country: US (occurrence: US)
  Receive Date: 20190909
  Receipt Date: 20190909
  Transmission Date: 20200122
  Serious: Yes (Hospitalization)
  Sender: FDA-Public Use
  Company Number: None

PATIENT
  Sex: Male

DRUGS (5)
  1. ALDACTONE [Concomitant]
     Active Substance: SPIRONOLACTONE
  2. SPIRONOLACT [Concomitant]
     Active Substance: SPIRONOLACTONE
  3. ENBREL [Suspect]
     Active Substance: ETANERCEPT
     Dosage: ?          OTHER FREQUENCY:QWK;?
     Route: 058
     Dates: start: 20160712
  4. TAMSULOSIN [Concomitant]
     Active Substance: TAMSULOSIN
  5. LISINOPRIL. [Concomitant]
     Active Substance: LISINOPRIL

REACTIONS (2)
  - Cerebrovascular accident [None]
  - Fall [None]
